FAERS Safety Report 6255568-X (Version None)
Quarter: 2009Q3

REPORT INFORMATION
  Report Type: 
  Country: None (occurrence: None)
  Receive Date: 20090702
  Receipt Date: 20090624
  Transmission Date: 20100115
  Serious: Yes (Death)
  Sender: FDA-Public Use
  Company Number: JP-AMGEN-US350073

PATIENT
  Sex: Female
  Weight: 35 kg

DRUGS (12)
  1. ENBREL [Suspect]
     Indication: RHEUMATOID ARTHRITIS
     Route: 058
     Dates: start: 20081021, end: 20090601
  2. CYTOTEC [Concomitant]
     Indication: GASTRIC ULCER
     Route: 048
     Dates: start: 20081011, end: 20090601
  3. CIBENOL [Concomitant]
     Indication: ARRHYTHMIA
     Route: 048
     Dates: start: 20080926, end: 20090601
  4. OLMETEC [Concomitant]
     Indication: HYPERTENSION
     Route: 048
     Dates: start: 20081022, end: 20090601
  5. METHOTREXATE [Concomitant]
     Indication: RHEUMATOID ARTHRITIS
     Dosage: 4 MG EVERY
     Dates: start: 20080701
  6. ISCOTIN [Concomitant]
     Indication: ANTIBIOTIC PROPHYLAXIS
     Route: 048
     Dates: start: 20081003, end: 20090601
  7. OMEPRAL [Concomitant]
     Indication: GASTRIC ULCER
     Route: 048
     Dates: start: 20081011, end: 20090601
  8. EVISTA [Concomitant]
     Indication: OSTEOPOROSIS
     Route: 048
     Dates: start: 20081014, end: 20090601
  9. CELECOXIB [Concomitant]
     Indication: PAIN
     Route: 048
     Dates: start: 20080909, end: 20090601
  10. DICLOFENAC [Concomitant]
     Indication: RHEUMATOID ARTHRITIS
     Dosage: DOSE AND FREQUENCY NOT SPECIFIED
     Route: 054
     Dates: start: 20080701
  11. MEDROL [Concomitant]
     Indication: RHEUMATOID ARTHRITIS
     Dosage: DAILY DOSE NOT SPECIFIED
     Route: 048
     Dates: start: 20080926, end: 20090601
  12. NORVASC [Concomitant]
     Indication: HYPERTENSION
     Route: 048
     Dates: start: 20081107, end: 20090601

REACTIONS (1)
  - SUDDEN DEATH [None]
